FAERS Safety Report 17133250 (Version 1)
Quarter: 2019Q4

REPORT INFORMATION
  Report Type: Spontaneous
  Country: US (occurrence: US)
  Receive Date: 20191209
  Receipt Date: 20191209
  Transmission Date: 20200122
  Serious: Yes (Hospitalization)
  Sender: FDA-Public Use
  Company Number: None

PATIENT
  Age: 23 Year
  Sex: Female

DRUGS (7)
  1. PANTOPRAZOLE [Concomitant]
     Active Substance: PANTOPRAZOLE
     Dates: start: 20190913
  2. XIIDRA [Concomitant]
     Active Substance: LIFITEGRAST
     Dates: start: 20190819
  3. PREDNISONE. [Concomitant]
     Active Substance: PREDNISONE
     Dates: start: 20191122
  4. UCERIS [Concomitant]
     Active Substance: BUDESONIDE
     Dates: start: 20190821
  5. MERCAPTOPUR [Concomitant]
     Dates: start: 20190923
  6. TRAZODONE [Concomitant]
     Active Substance: TRAZODONE HYDROCHLORIDE
     Dates: start: 20190923
  7. STELARA [Suspect]
     Active Substance: USTEKINUMAB
     Indication: CROHN^S DISEASE
     Dosage: ?          OTHER FREQUENCY:EVERY 4 WEEKS;?
     Route: 058
     Dates: start: 20180821

REACTIONS (2)
  - Product dose omission [None]
  - Crohn^s disease [None]
